FAERS Safety Report 15338105 (Version 1)
Quarter: 2018Q3

REPORT INFORMATION
  Report Type: Spontaneous
  Country: LT (occurrence: LT)
  Receive Date: 20180831
  Receipt Date: 20180831
  Transmission Date: 20181010
  Serious: Yes (Hospitalization, Other)
  Sender: FDA-Public Use
  Company Number: LT-ACCORD-071186

PATIENT
  Age: 70 Year
  Sex: Female

DRUGS (7)
  1. RIFAMPICIN [Interacting]
     Active Substance: RIFAMPIN
     Indication: PULMONARY TUBERCULOSIS
  2. ISONIAZID/ISONIAZID CALCIUM PYRUVINATE/ISONIAZID SODIUM GLUCURONATE [Concomitant]
     Indication: PULMONARY TUBERCULOSIS
  3. ETHAMBUTOL [Concomitant]
     Active Substance: ETHAMBUTOL HYDROCHLORIDE
     Indication: PULMONARY TUBERCULOSIS
  4. MYCOPHENOLIC ACID. [Concomitant]
     Active Substance: MYCOPHENOLIC ACID
     Indication: IMMUNOSUPPRESSION
  5. PYRAZINAMIDE. [Concomitant]
     Active Substance: PYRAZINAMIDE
     Indication: PULMONARY TUBERCULOSIS
  6. TACROLIMUS. [Suspect]
     Active Substance: TACROLIMUS
     Indication: IMMUNOSUPPRESSION
  7. PREDNISOLONE. [Concomitant]
     Active Substance: PREDNISOLONE
     Indication: IMMUNOSUPPRESSION

REACTIONS (3)
  - Drug level decreased [Recovered/Resolved]
  - Drug interaction [Unknown]
  - Transplant rejection [Unknown]

NARRATIVE: CASE EVENT DATE: 2016
